FAERS Safety Report 8053122-0 (Version None)
Quarter: 2012Q1

REPORT INFORMATION
  Report Type: 
  Country: None (occurrence: None)
  Receive Date: 20120118
  Receipt Date: 20120113
  Transmission Date: 20120608
  Serious: Yes (Other)
  Sender: FDA-Public Use
  Company Number: US-PFIZER INC-2012011788

PATIENT
  Age: 48 Year
  Sex: Male

DRUGS (3)
  1. VARENICLINE TARTRATE [Suspect]
     Indication: NICOTINE DEPENDENCE
     Dosage: 0.5 MG, 1X/DAY
  2. VARENICLINE TARTRATE [Suspect]
     Dosage: 0.5 MG, 2X/DAY
  3. VARENICLINE TARTRATE [Suspect]
     Dosage: 1 MG, 2X/DAY

REACTIONS (6)
  - PSYCHOTIC DISORDER [None]
  - PARANOID PERSONALITY DISORDER [None]
  - VIOLENCE-RELATED SYMPTOM [None]
  - ANXIETY [None]
  - INSOMNIA [None]
  - DRUG WITHDRAWAL SYNDROME [None]
